FAERS Safety Report 21077794 (Version 15)
Quarter: 2025Q4

REPORT INFORMATION
  Report Type: Report from Study
  Country: US (occurrence: US)
  Receive Date: 20220713
  Receipt Date: 20251230
  Transmission Date: 20260118
  Serious: Yes (Other)
  Sender: PFIZER
  Company Number: US-PFIZER INC-PV202200021760

PATIENT
  Age: 64 Year
  Sex: Male

DRUGS (1)
  1. TIKOSYN [Suspect]
     Active Substance: DOFETILIDE
     Indication: Atrial fibrillation
     Dosage: 500 UG, 2X/DAY
     Route: 048
     Dates: start: 20230615

REACTIONS (3)
  - Neuropathy peripheral [Unknown]
  - Amnesia [Unknown]
  - Off label use [Unknown]
